FAERS Safety Report 20163452 (Version 2)
Quarter: 2022Q1

REPORT INFORMATION
  Report Type: Spontaneous
  Country: IR (occurrence: IR)
  Receive Date: 20211209
  Receipt Date: 20220105
  Transmission Date: 20220423
  Serious: No
  Sender: FDA-Public Use
  Company Number: IR-LUPIN PHARMACEUTICALS INC.-2021-23892

PATIENT
  Age: 30 Year
  Sex: Female

DRUGS (6)
  1. CETIRIZINE [Suspect]
     Active Substance: CETIRIZINE HYDROCHLORIDE
     Indication: Urticarial vasculitis
     Dosage: UNK
     Route: 065
     Dates: start: 202009
  2. IRON [Suspect]
     Active Substance: IRON
     Indication: Mineral supplementation
     Dosage: UNK
     Route: 065
  3. VITAMINS [Suspect]
     Active Substance: VITAMINS
     Indication: Vitamin supplementation
     Dosage: UNK
     Route: 065
  4. VITAMINS [Suspect]
     Active Substance: VITAMINS
     Indication: Urticarial vasculitis
  5. ACETAMINOPHEN [Suspect]
     Active Substance: ACETAMINOPHEN
     Indication: Urticarial vasculitis
     Dosage: UNK
     Route: 065
     Dates: start: 202009
  6. HEPARIN [Suspect]
     Active Substance: HEPARIN SODIUM
     Indication: Urticarial vasculitis
     Dosage: UNK
     Route: 058
     Dates: start: 202009

REACTIONS (1)
  - Exposure during pregnancy [Unknown]
